FAERS Safety Report 4861582-9 (Version None)
Quarter: 2005Q4

REPORT INFORMATION
  Report Type: 
  Country: None (occurrence: None)
  Receive Date: 20051220
  Receipt Date: 20031215
  Transmission Date: 20060501
  Serious: Yes (Hospitalization)
  Sender: FDA-Public Use
  Company Number: CA-BRISTOL-MYERS SQUIBB COMPANY-12458626

PATIENT
  Age: 89 Year
  Sex: Male

DRUGS (8)
  1. TEQUIN [Suspect]
     Indication: SINUSITIS
     Route: 048
     Dates: start: 20031110, end: 20031111
  2. GLYBURIDE [Concomitant]
  3. METOPROLOL [Concomitant]
  4. SIMVASTATIN [Concomitant]
     Dosage: AT BEDTIME
  5. ASPIRIN [Concomitant]
  6. METFORMIN HCL [Concomitant]
  7. NITRODUR II [Concomitant]
     Route: 061
  8. ACETAMINOPHEN [Concomitant]
     Dosage: DOSAGE 1 EVERY 4-6 HOURS AS NECESSARY

REACTIONS (1)
  - HYPOGLYCAEMIA [None]
